FAERS Safety Report 24267806 (Version 1)
Quarter: 2024Q3

REPORT INFORMATION
  Report Type: Spontaneous
  Country: CN (occurrence: CN)
  Receive Date: 20240830
  Receipt Date: 20240830
  Transmission Date: 20241017
  Serious: Yes (Disabling)
  Sender: JIANGSU HENGRUI MEDICINE
  Company Number: CN-Jiangsu Hengrui Medicine Co., Ltd.-2161025

PATIENT
  Age: 14 Year
  Sex: Female
  Weight: 36.8 kg

DRUGS (4)
  1. CYCLOPHOSPHAMIDE [Suspect]
     Active Substance: CYCLOPHOSPHAMIDE
     Indication: Acute lymphocytic leukaemia
     Route: 041
     Dates: start: 20240805, end: 20240805
  2. AZATHIOPRINE [Suspect]
     Active Substance: AZATHIOPRINE
     Route: 048
     Dates: start: 20240805, end: 20240819
  3. MESNA [Suspect]
     Active Substance: MESNA
     Dates: start: 20240805, end: 20240805
  4. CYTARABINE [Suspect]
     Active Substance: CYTARABINE
     Route: 041
     Dates: start: 20240807, end: 20240810

REACTIONS (1)
  - Drug-induced liver injury [Recovering/Resolving]

NARRATIVE: CASE EVENT DATE: 20240811
